FAERS Safety Report 6122070-5 (Version None)
Quarter: 2009Q1

REPORT INFORMATION
  Report Type: 
  Country: None (occurrence: None)
  Receive Date: 20090316
  Receipt Date: 20090316
  Transmission Date: 20090719
  Serious: Yes (Hospitalization)
  Sender: FDA-Public Use
  Company Number: None

PATIENT
  Age: 42 Year
  Sex: Female

DRUGS (2)
  1. VANCOMYCIN [Suspect]
     Indication: ACNE
     Dosage: 1 GRAM EVERY 12 HOURS IV DRIP
     Route: 041
     Dates: start: 20090218, end: 20090218
  2. VANCOMYCIN [Suspect]
     Indication: PROPIONIBACTERIUM INFECTION
     Dosage: 1 GRAM EVERY 12 HOURS IV DRIP
     Route: 041
     Dates: start: 20090218, end: 20090218

REACTIONS (6)
  - CONDITION AGGRAVATED [None]
  - INFLUENZA LIKE ILLNESS [None]
  - INFUSION RELATED REACTION [None]
  - PRODUCT QUALITY ISSUE [None]
  - PYREXIA [None]
  - RASH [None]
